FAERS Safety Report 8351240 (Version 5)
Quarter: 2013Q1

REPORT INFORMATION
  Report Type: Spontaneous
  Country: CA (occurrence: CA)
  Receive Date: 20120124
  Receipt Date: 20130221
  Transmission Date: 20140127
  Serious: Yes (Other)
  Sender: FDA-Public Use
  Company Number: PHHY2009CA24453

PATIENT
  Sex: Female

DRUGS (1)
  1. SANDOSTATIN LAR [Suspect]
     Indication: NEUROENDOCRINE TUMOUR
     Dosage: 30 MG, QMO
     Route: 030
     Dates: start: 20080912

REACTIONS (19)
  - Oral herpes [Unknown]
  - Blood pressure abnormal [Unknown]
  - Blood pressure systolic increased [Unknown]
  - Heart rate decreased [Unknown]
  - Pyrexia [Unknown]
  - Influenza [Unknown]
  - Palpitations [Unknown]
  - Acne [Unknown]
  - Weight decreased [Unknown]
  - Back pain [Unknown]
  - Burning sensation [Unknown]
  - Insomnia [Unknown]
  - Nasopharyngitis [Unknown]
  - Renal pain [Unknown]
  - Flushing [Unknown]
  - Diarrhoea [Unknown]
  - Asthenia [Unknown]
  - Dyspnoea [Unknown]
  - Fatigue [Unknown]
